FAERS Safety Report 18138105 (Version 3)
Quarter: 2020Q3

REPORT INFORMATION
  Report Type: Spontaneous
  Country: FR (occurrence: FR)
  Receive Date: 20200812
  Receipt Date: 20200826
  Transmission Date: 20201103
  Serious: Yes (Hospitalization, Disabling, Other)
  Sender: FDA-Public Use
  Company Number: FR-ACCORD-194911

PATIENT
  Age: 68 Year
  Sex: Female
  Weight: 71 kg

DRUGS (3)
  1. RIBOCICLIB. [Interacting]
     Active Substance: RIBOCICLIB
     Indication: BREAST CANCER
     Dosage: ONCE DAILY FOR THREE WEEKS FOLLOWED?BY SEVEN DAYS OFF
     Route: 048
     Dates: start: 20191028, end: 20191123
  2. LETROZOLE. [Concomitant]
     Active Substance: LETROZOLE
     Indication: BREAST CANCER
     Dosage: EVERY DAY
  3. SIMVASTATIN. [Suspect]
     Active Substance: SIMVASTATIN
     Indication: HYPERCHOLESTEROLAEMIA
     Dosage: DAILY
     Route: 048
     Dates: start: 20191123

REACTIONS (3)
  - Drug interaction [Unknown]
  - Rhabdomyolysis [Recovered/Resolved]
  - Drug level increased [Unknown]

NARRATIVE: CASE EVENT DATE: 201911
